FAERS Safety Report 10367630 (Version 1)
Quarter: 2014Q3

REPORT INFORMATION
  Report Type: Report from Study
  Country: CA (occurrence: CA)
  Receive Date: 20140807
  Receipt Date: 20140807
  Transmission Date: 20150326
  Serious: Yes (Other)
  Sender: FDA-Public Use
  Company Number: CA-JNJFOC-20140800650

PATIENT
  Sex: Male

DRUGS (2)
  1. SIMPONI [Suspect]
     Active Substance: GOLIMUMAB
     Indication: PSORIATIC ARTHROPATHY
     Route: 058
     Dates: end: 201407
  2. KEFLEX [Suspect]
     Active Substance: CEPHALEXIN
     Indication: PNEUMONIA
     Route: 065

REACTIONS (3)
  - Rash [Recovered/Resolved]
  - Pneumonia [Unknown]
  - Skin exfoliation [Unknown]
